FAERS Safety Report 16970769 (Version 1)
Quarter: 2019Q4

REPORT INFORMATION
  Report Type: Report from Study
  Country: CA (occurrence: CA)
  Receive Date: 20191029
  Receipt Date: 20191029
  Transmission Date: 20200122
  Serious: Yes (Death, Hospitalization)
  Sender: FDA-Public Use
  Company Number: CA-PFIZER INC-2019463002

PATIENT
  Age: 68 Year
  Sex: Male

DRUGS (6)
  1. COSENTYX [Suspect]
     Active Substance: SECUKINUMAB
     Indication: PSORIASIS
     Dosage: 300 MG, MONTHLY
     Route: 058
  2. COSENTYX [Suspect]
     Active Substance: SECUKINUMAB
     Dosage: 300 MG, MONTHLY
     Route: 058
  3. CICLOSPORIN [Suspect]
     Active Substance: CYCLOSPORINE
     Dosage: UNK
     Route: 065
  4. ACITRETIN. [Concomitant]
     Active Substance: ACITRETIN
     Dosage: UNK
     Route: 065
  5. METHOTREXATE SODIUM. [Suspect]
     Active Substance: METHOTREXATE SODIUM
     Route: 065
  6. COSENTYX [Suspect]
     Active Substance: SECUKINUMAB
     Indication: PSORIASIS
     Dosage: 300 MG, MONTHLY
     Route: 058

REACTIONS (4)
  - Blood count abnormal [Fatal]
  - Skin discolouration [Fatal]
  - Haematological malignancy [Fatal]
  - Psoriasis [Fatal]
